FAERS Safety Report 21226814 (Version 1)
Quarter: 2022Q3

REPORT INFORMATION
  Report Type: Spontaneous
  Country: CN (occurrence: CN)
  Receive Date: 20220818
  Receipt Date: 20220818
  Transmission Date: 20221027
  Serious: Yes (Hospitalization, Other)
  Sender: FDA-Public Use
  Company Number: None

PATIENT
  Age: 78 Year
  Sex: Female
  Weight: 54 kg

DRUGS (5)
  1. CYCLOPHOSPHAMIDE [Suspect]
     Active Substance: CYCLOPHOSPHAMIDE
     Indication: Diffuse large B-cell lymphoma
     Dosage: DOSAGE FORM- INJECTION, R-CHOP REGIMEN- 1 G, QD, D1
     Route: 041
     Dates: start: 20220723, end: 20220723
  2. RITUXIMAB [Suspect]
     Active Substance: RITUXIMAB
     Indication: Diffuse large B-cell lymphoma
     Dosage: R-CHOP REGIMEN- 500 MG, QD, D0
     Route: 041
     Dates: start: 20220722, end: 20220722
  3. VINCRISTINE SULFATE [Suspect]
     Active Substance: VINCRISTINE SULFATE
     Indication: Diffuse large B-cell lymphoma
     Dosage: R-CHOP REGIMEN- 2 MG, QD, D1
     Route: 042
     Dates: start: 20220723, end: 20220723
  4. DOXORUBICIN HYDROCHLORIDE [Suspect]
     Active Substance: DOXORUBICIN HYDROCHLORIDE
     Indication: Diffuse large B-cell lymphoma
     Dosage: R-CHOP REGIMEN- 20 MG, QD, D1-2, ROUTE- INTRA-PUMP INJECTION
     Route: 050
     Dates: start: 20220723, end: 20220724
  5. PREDNISOLONE [Suspect]
     Active Substance: PREDNISOLONE
     Indication: Diffuse large B-cell lymphoma
     Dosage: R-CHOP REGIMEN- 90 MG, D1-5
     Route: 065
     Dates: start: 20220723, end: 20220727

REACTIONS (9)
  - Discomfort [Unknown]
  - Chest discomfort [Unknown]
  - Condition aggravated [Unknown]
  - Myelosuppression [Recovering/Resolving]
  - Pain [Unknown]
  - Asthenia [Unknown]
  - Hyperhidrosis [Unknown]
  - Palpitations [Unknown]
  - Dyspnoea [Unknown]

NARRATIVE: CASE EVENT DATE: 20220727
